FAERS Safety Report 20583104 (Version 1)
Quarter: 2022Q1

REPORT INFORMATION
  Report Type: Report from Study
  Country: US (occurrence: US)
  Receive Date: 20220311
  Receipt Date: 20220311
  Transmission Date: 20220423
  Serious: Yes (Other)
  Sender: FDA-Public Use
  Company Number: US-BIOVITRUM-2022US03489

PATIENT
  Age: 31 Year
  Sex: Female

DRUGS (2)
  1. ANAKINRA [Suspect]
     Active Substance: ANAKINRA
     Indication: Hepatitis alcoholic
  2. ZINC [Suspect]
     Active Substance: ZINC
     Indication: Hepatitis alcoholic

REACTIONS (2)
  - Hepatic encephalopathy [Recovering/Resolving]
  - Clostridium difficile colitis [Recovered/Resolved]
